FAERS Safety Report 16790164 (Version 1)
Quarter: 2019Q3

REPORT INFORMATION
  Report Type: Report from Study
  Country: CA (occurrence: CA)
  Receive Date: 20190910
  Receipt Date: 20190910
  Transmission Date: 20191005
  Serious: Yes (Other)
  Sender: FDA-Public Use
  Company Number: CA-JNJFOC-20190742141

PATIENT
  Age: 26 Year
  Sex: Female

DRUGS (1)
  1. STELARA [Suspect]
     Active Substance: USTEKINUMAB
     Indication: CROHN^S DISEASE
     Route: 058
     Dates: start: 20180731

REACTIONS (4)
  - Migraine [Unknown]
  - Perineal abscess [Not Recovered/Not Resolved]
  - Cystitis [Unknown]
  - Haematochezia [Unknown]

NARRATIVE: CASE EVENT DATE: 201907
